FAERS Safety Report 21805033 (Version 2)
Quarter: 2023Q1

REPORT INFORMATION
  Report Type: Spontaneous
  Country: JP (occurrence: JP)
  Receive Date: 20230102
  Receipt Date: 20230222
  Transmission Date: 20230418
  Serious: Yes (Hospitalization, Other)
  Sender: FDA-Public Use
  Company Number: JP-SA-SAC20221227000494

PATIENT
  Age: 65 Year
  Sex: Female

DRUGS (4)
  1. AMLODIPINE BESYLATE [Suspect]
     Active Substance: AMLODIPINE BESYLATE
     Indication: Suicide attempt
     Dosage: 360 MG, SINGLE
     Route: 048
  2. AVAPRO [Suspect]
     Active Substance: IRBESARTAN
     Indication: Suicide attempt
     Dosage: 3100 MG,YSINGLE
     Route: 048
  3. AMLODIPINE BESYLATE\IRBESARTAN [Suspect]
     Active Substance: AMLODIPINE BESYLATE\IRBESARTAN
     Indication: Suicide attempt
     Dosage: 3460 MG, 1X
     Route: 048
  4. POTASSIUM ASPARTATE [Concomitant]
     Active Substance: POTASSIUM ASPARTATE
     Dosage: 45.6 G
     Route: 048

REACTIONS (7)
  - Vascular resistance systemic decreased [Recovering/Resolving]
  - Overdose [Unknown]
  - Hypotension [Recovering/Resolving]
  - Altered state of consciousness [Recovering/Resolving]
  - Acute kidney injury [Recovering/Resolving]
  - Oliguria [Recovering/Resolving]
  - Hyperkalaemia [Unknown]
